FAERS Safety Report 8001959-6 (Version None)
Quarter: 2011Q4

REPORT INFORMATION
  Report Type: 
  Country: None (occurrence: None)
  Receive Date: 20111220
  Receipt Date: 20111111
  Transmission Date: 20120403
  Serious: Yes (Other)
  Sender: FDA-Public Use
  Company Number: JPI-P-017971

PATIENT
  Age: 55 Year
  Sex: Female
  Weight: 83.9154 kg

DRUGS (30)
  1. PENTOSAN POLYSULFATE SODIUM [Concomitant]
  2. XYREM [Suspect]
     Indication: MIDDLE INSOMNIA
     Dosage: 6 GM (3 GM, 2 IN 1 D), ORAL (3 GM FIRST DOSE/1.5 GM SECOND DOSE), ORAL 9 GM (4.5 G, 2 IN 1 D), ORAL
     Route: 048
     Dates: start: 20110101, end: 20110101
  3. XYREM [Suspect]
     Indication: NARCOLEPSY
     Dosage: 6 GM (3 GM, 2 IN 1 D), ORAL (3 GM FIRST DOSE/1.5 GM SECOND DOSE), ORAL 9 GM (4.5 G, 2 IN 1 D), ORAL
     Route: 048
     Dates: start: 20110101, end: 20110101
  4. XYREM [Suspect]
     Indication: INITIAL INSOMNIA
     Dosage: 6 GM (3 GM, 2 IN 1 D), ORAL (3 GM FIRST DOSE/1.5 GM SECOND DOSE), ORAL 9 GM (4.5 G, 2 IN 1 D), ORAL
     Route: 048
     Dates: start: 20110101, end: 20110101
  5. XYREM [Suspect]
     Indication: MIDDLE INSOMNIA
     Dosage: 6 GM (3 GM, 2 IN 1 D), ORAL (3 GM FIRST DOSE/1.5 GM SECOND DOSE), ORAL 9 GM (4.5 G, 2 IN 1 D), ORAL
     Route: 048
     Dates: start: 20110413, end: 20110101
  6. XYREM [Suspect]
     Indication: NARCOLEPSY
     Dosage: 6 GM (3 GM, 2 IN 1 D), ORAL (3 GM FIRST DOSE/1.5 GM SECOND DOSE), ORAL 9 GM (4.5 G, 2 IN 1 D), ORAL
     Route: 048
     Dates: start: 20110413, end: 20110101
  7. XYREM [Suspect]
     Indication: INITIAL INSOMNIA
     Dosage: 6 GM (3 GM, 2 IN 1 D), ORAL (3 GM FIRST DOSE/1.5 GM SECOND DOSE), ORAL 9 GM (4.5 G, 2 IN 1 D), ORAL
     Route: 048
     Dates: start: 20110413, end: 20110101
  8. XYREM [Suspect]
     Indication: MIDDLE INSOMNIA
     Dosage: 6 GM (3 GM, 2 IN 1 D), ORAL (3 GM FIRST DOSE/1.5 GM SECOND DOSE), ORAL 9 GM (4.5 G, 2 IN 1 D), ORAL
     Route: 048
     Dates: start: 20110101, end: 20111114
  9. XYREM [Suspect]
     Indication: NARCOLEPSY
     Dosage: 6 GM (3 GM, 2 IN 1 D), ORAL (3 GM FIRST DOSE/1.5 GM SECOND DOSE), ORAL 9 GM (4.5 G, 2 IN 1 D), ORAL
     Route: 048
     Dates: start: 20110101, end: 20111114
  10. XYREM [Suspect]
     Indication: INITIAL INSOMNIA
     Dosage: 6 GM (3 GM, 2 IN 1 D), ORAL (3 GM FIRST DOSE/1.5 GM SECOND DOSE), ORAL 9 GM (4.5 G, 2 IN 1 D), ORAL
     Route: 048
     Dates: start: 20110101, end: 20111114
  11. PANTOPRAZOLE [Concomitant]
  12. CLOPIDOGREL BISULFATE [Concomitant]
  13. BUSPIRONE HCL [Concomitant]
  14. HYDROCODONE BITARTRATE AND ACETAMINOPHEN [Suspect]
     Indication: NECK PAIN
     Dosage: (UNKNOWN), UNKNOWN
     Dates: start: 20111029, end: 20111121
  15. HYDROCODONE BITARTRATE AND ACETAMINOPHEN [Suspect]
     Indication: BACK PAIN
     Dosage: (UNKNOWN), UNKNOWN
     Dates: start: 20111029, end: 20111121
  16. NAPROXEN [Concomitant]
  17. LAMOTRIGINE [Concomitant]
  18. BUTALBITAL ACETAMINOPHEN AND CAFFEINE [Concomitant]
  19. NEFAZODONE HCL [Concomitant]
  20. METAXALONE [Concomitant]
  21. VITAMIN B-12 [Concomitant]
  22. AMPHETAMINE, TEXTROAMPHETAMINE MIXED SALTS [Concomitant]
  23. MELATONIN [Concomitant]
  24. ZIPRASIDONE HYDROCHLORIDE [Concomitant]
  25. MAGNESIUM [Concomitant]
  26. TOLTERODINE TARTRATE [Concomitant]
  27. CHLORDIAZEPOXIDE [Concomitant]
  28. TEMAZEPAM [Concomitant]
  29. SIMVASTATIN [Concomitant]
  30. PHENAZOPYRIDINE HCL TAB [Concomitant]

REACTIONS (9)
  - GAIT DISTURBANCE [None]
  - CONDITION AGGRAVATED [None]
  - NECK PAIN [None]
  - SCOLIOSIS [None]
  - BACK PAIN [None]
  - SOMNOLENCE [None]
  - DRUG INEFFECTIVE [None]
  - SPINAL COLUMN STENOSIS [None]
  - INTERVERTEBRAL DISC PROTRUSION [None]
